FAERS Safety Report 7698764-7 (Version None)
Quarter: 2011Q3

REPORT INFORMATION
  Report Type: 
  Country: None (occurrence: None)
  Receive Date: 20110819
  Receipt Date: 20110816
  Transmission Date: 20111222
  Serious: Yes (Other)
  Sender: FDA-Public Use
  Company Number: US-PFIZER INC-2011139038

PATIENT
  Sex: Male
  Weight: 110 kg

DRUGS (2)
  1. LISINOPRIL [Concomitant]
     Dosage: UNK
  2. EFFEXOR [Suspect]
     Indication: DEPRESSION
     Dosage: UNK
     Route: 048
     Dates: start: 20030101, end: 20101001

REACTIONS (4)
  - AGITATION [None]
  - ANXIETY [None]
  - PANIC ATTACK [None]
  - IRRITABILITY [None]
